FAERS Safety Report 9243547 (Version 1)
Quarter: 2013Q2

REPORT INFORMATION
  Report Type: Spontaneous
  Country: US (occurrence: US)
  Receive Date: 20130422
  Receipt Date: 20130422
  Transmission Date: 20140414
  Serious: No
  Sender: FDA-Public Use
  Company Number: US-009507513-1304USA008855

PATIENT
  Age: 38 Year
  Sex: Female

DRUGS (9)
  1. VICTRELIS [Suspect]
     Indication: HEPATITIS C
     Dosage: 800 MG, TID
     Route: 048
     Dates: start: 201304
  2. RIBAPAK [Suspect]
     Dosage: 400 MG DOSE PK 14 TABLET
  3. PEGASYS [Suspect]
     Dosage: 180 MCG/0.5M INJ 4
  4. ZOFRAN [Concomitant]
     Dosage: 4 MG, UNK
  5. LAMICTAL [Concomitant]
     Dosage: 200 MG, UNK
  6. PRILOSEC [Concomitant]
     Dosage: 20 MG, UNK
  7. ACETAMINOPHEN [Concomitant]
     Dosage: 500 MG, UNK
  8. CONCERTA [Concomitant]
     Dosage: 54 MG, UNK
  9. BACTRIM DS [Concomitant]

REACTIONS (2)
  - Fatigue [Unknown]
  - Fatigue [Unknown]
